FAERS Safety Report 16222109 (Version 1)
Quarter: 2019Q2

REPORT INFORMATION
  Report Type: Report from Study
  Country: ZA (occurrence: ZA)
  Receive Date: 20190422
  Receipt Date: 20190422
  Transmission Date: 20190711
  Serious: Yes (Life-Threatening)
  Sender: FDA-Public Use
  Company Number: ZA-SA-2019SA107154

PATIENT
  Age: 48 Year
  Sex: Male

DRUGS (4)
  1. TOUJEO [Concomitant]
     Active Substance: INSULIN GLARGINE
     Dosage: 30 U AT BED TIME, HS
     Dates: start: 20190403
  2. OPTISULIN (INSULIN GLARGINE) [Suspect]
     Active Substance: INSULIN GLARGINE
  3. NO STUDY DRUG GIVEN [Suspect]
     Active Substance: UNSPECIFIED INGREDIENT
  4. APIDRA [Concomitant]
     Active Substance: INSULIN GLULISINE
     Dosage: 3XD-10 UNITS

REACTIONS (2)
  - Malaise [Recovered/Resolved]
  - Product dose omission [Unknown]
